FAERS Safety Report 10092389 (Version 1)
Quarter: 2014Q2

REPORT INFORMATION
  Report Type: Spontaneous
  Country: US (occurrence: US)
  Receive Date: 20140421
  Receipt Date: 20140421
  Transmission Date: 20141212
  Serious: No
  Sender: FDA-Public Use
  Company Number: US-SANOFI-AVENTIS-2013SA038981

PATIENT
  Age: 77 Year
  Sex: Female

DRUGS (4)
  1. ALLEGRA [Suspect]
     Indication: HYPERSENSITIVITY
     Route: 048
  2. XARELTO [Suspect]
  3. TENORMIN [Concomitant]
  4. TUMS [Concomitant]

REACTIONS (1)
  - Epistaxis [Not Recovered/Not Resolved]
